FAERS Safety Report 6690568-7 (Version None)
Quarter: 2010Q2

REPORT INFORMATION
  Report Type: 
  Country: None (occurrence: None)
  Receive Date: 20100421
  Receipt Date: 20100119
  Transmission Date: 20101027
  Serious: Yes (Hospitalization)
  Sender: FDA-Public Use
  Company Number: A0836770A

PATIENT
  Age: 74 Year
  Sex: Female
  Weight: 60 kg

DRUGS (8)
  1. TOPOTECAN [Suspect]
     Dosage: 12MG CYCLIC
     Route: 048
     Dates: start: 20091215
  2. ASPIRIN [Concomitant]
     Dates: start: 20091214
  3. MULTI-VITAMIN [Concomitant]
     Dates: start: 20091214
  4. ACCURETIC [Concomitant]
     Indication: HYPERTENSION
     Dates: start: 20091214
  5. METOPROLOL TARTRATE [Concomitant]
     Indication: HYPERTENSION
     Dates: start: 20091124
  6. COMPAZINE [Concomitant]
     Dates: start: 20091124
  7. MAGNESIUM GLUCONATE [Concomitant]
     Dosage: 1G TWICE PER DAY
     Route: 048
  8. LEVOTHYROXINE [Concomitant]
     Dosage: 88MG PER DAY
     Route: 048

REACTIONS (5)
  - ABDOMINAL PAIN [None]
  - DEHYDRATION [None]
  - NAUSEA [None]
  - SMALL INTESTINAL OBSTRUCTION [None]
  - VOMITING [None]
